FAERS Safety Report 19212241 (Version 2)
Quarter: 2021Q3

REPORT INFORMATION
  Report Type: Report from Study
  Country: CO (occurrence: CO)
  Receive Date: 20210504
  Receipt Date: 20210804
  Transmission Date: 20211014
  Serious: Yes (Hospitalization)
  Sender: FDA-Public Use
  Company Number: NVSC2021CO061341

PATIENT
  Age: 58 Year
  Sex: Female
  Weight: 76 kg

DRUGS (3)
  1. GILENYA [Suspect]
     Active Substance: FINGOLIMOD HYDROCHLORIDE
     Indication: MULTIPLE SCLEROSIS
     Dosage: 0.5 MG, QD
     Route: 048
     Dates: start: 20141031, end: 20210313
  2. LEBRINA [Concomitant]
     Active Substance: FINGOLIMOD HYDROCHLORIDE
     Indication: PRODUCT USED FOR UNKNOWN INDICATION
     Dosage: STARTED IN MAR
     Route: 065
  3. AMLODIPINE [Concomitant]
     Active Substance: AMLODIPINE BESYLATE
     Indication: HYPERTENSION
     Dosage: 0.5 MG, Q12H
     Route: 048
     Dates: start: 202012

REACTIONS (10)
  - Nausea [Recovered/Resolved]
  - Chills [Recovered/Resolved]
  - Tremor [Unknown]
  - Gait disturbance [Unknown]
  - COVID-19 pneumonia [Recovered/Resolved]
  - Dyspnoea [Recovered/Resolved]
  - Fatigue [Recovered/Resolved]
  - Inflammation [Unknown]
  - Product dispensing error [Unknown]
  - Product dose omission issue [Unknown]

NARRATIVE: CASE EVENT DATE: 20210305
